FAERS Safety Report 7116252-3 (Version None)
Quarter: 2010Q4

REPORT INFORMATION
  Report Type: 
  Country: None (occurrence: None)
  Receive Date: 20101122
  Receipt Date: 20100928
  Transmission Date: 20110411
  Serious: No
  Sender: FDA-Public Use
  Company Number: US-BAYER-201021956BCC

PATIENT
  Age: 77 Year
  Sex: Female
  Weight: 77 kg

DRUGS (4)
  1. ALEVE (CAPLET) [Suspect]
     Indication: PRODUCT USED FOR UNKNOWN INDICATION
     Dosage: TOTAL DAILY DOSE: 220 MG  UNIT DOSE: 220 MG
     Route: 048
     Dates: start: 20100901, end: 20100901
  2. ALEVE (CAPLET) [Suspect]
     Dosage: TOTAL DAILY DOSE: 220 MG  UNIT DOSE: 220 MG
     Route: 048
     Dates: start: 20100901
  3. NATURAL HEALTH DEPARTMENT VITAMIN B12 [Concomitant]
  4. NATURAL HEALTH DEPARTMENT VITAMIN D [Concomitant]

REACTIONS (6)
  - ABDOMINAL DISCOMFORT [None]
  - APHAGIA [None]
  - FEELING COLD [None]
  - NAUSEA [None]
  - TREMOR [None]
  - VOMITING [None]
